FAERS Safety Report 7478060-3 (Version None)
Quarter: 2011Q2

REPORT INFORMATION
  Report Type: 
  Country: None (occurrence: None)
  Receive Date: 20110511
  Receipt Date: 20110511
  Transmission Date: 20111010
  Serious: Yes (Other)
  Sender: FDA-Public Use
  Company Number: None

PATIENT
  Age: 74 Year
  Sex: Female
  Weight: 79.3795 kg

DRUGS (1)
  1. CLINDAMYCIN [Suspect]
     Indication: CAT SCRATCH DISEASE
     Dosage: 450 MG EVERY 8 HOURS PO
     Route: 048
     Dates: start: 20110503, end: 20110508

REACTIONS (7)
  - DIARRHOEA [None]
  - IMPAIRED WORK ABILITY [None]
  - DEHYDRATION [None]
  - FAECAL INCONTINENCE [None]
  - INSOMNIA [None]
  - PYREXIA [None]
  - FLATULENCE [None]
